FAERS Safety Report 21059080 (Version 1)
Quarter: 2022Q3

REPORT INFORMATION
  Report Type: Spontaneous
  Country: HU (occurrence: HU)
  Receive Date: 20220708
  Receipt Date: 20220708
  Transmission Date: 20221026
  Serious: Yes (Hospitalization, Other)
  Sender: FDA-Public Use
  Company Number: HU-INSUD PHARMA-2206HU02640

PATIENT
  Age: 33 Year
  Sex: Female

DRUGS (4)
  1. DROSPIRENONE [Suspect]
     Active Substance: DROSPIRENONE
     Indication: Contraception
     Dosage: 1 DOSAGE FORM, QD
     Dates: start: 202011, end: 202202
  2. SARS-COV-2 VACCINE [Concomitant]
     Dosage: 1 DOSAGE FORM
     Dates: start: 202202, end: 202202
  3. DICLOFENAC [Concomitant]
     Active Substance: DICLOFENAC
     Indication: Back pain
     Dosage: 50 MILLIGRAM, BID
  4. DEXKETOPROFEN [Concomitant]
     Active Substance: DEXKETOPROFEN
     Indication: Back pain
     Dosage: 25 MILLIGRAM, BID

REACTIONS (1)
  - Visceral venous thrombosis [Recovered/Resolved]

NARRATIVE: CASE EVENT DATE: 20220201
